FAERS Safety Report 22918407 (Version 5)
Quarter: 2023Q4

REPORT INFORMATION
  Report Type: Report from Study
  Country: US (occurrence: US)
  Receive Date: 20230907
  Receipt Date: 20231121
  Transmission Date: 20240110
  Serious: Yes (Hospitalization, Other)
  Sender: FDA-Public Use
  Company Number: US-ABBVIE-5397171

PATIENT
  Sex: Male

DRUGS (4)
  1. VENCLEXTA [Suspect]
     Active Substance: VENETOCLAX
     Indication: Acute myeloid leukaemia
     Dosage: END DATE: 2023
     Route: 048
     Dates: start: 20230830
  2. VENCLEXTA [Suspect]
     Active Substance: VENETOCLAX
     Indication: Acute myeloid leukaemia
     Dosage: END DATE: 2023
     Route: 048
     Dates: start: 202308
  3. VENCLEXTA [Suspect]
     Active Substance: VENETOCLAX
     Indication: Acute myeloid leukaemia
     Route: 048
     Dates: start: 202309
  4. VENCLEXTA [Suspect]
     Active Substance: VENETOCLAX
     Indication: Acute myeloid leukaemia
     Route: 048
     Dates: start: 202308, end: 202311

REACTIONS (8)
  - White blood cell count decreased [Unknown]
  - Hepatic enzyme increased [Unknown]
  - Hernia [Unknown]
  - Cholelithiasis [Unknown]
  - Pneumonia [Unknown]
  - Platelet count decreased [Unknown]
  - Cholecystitis infective [Unknown]
  - Leukaemia recurrent [Unknown]

NARRATIVE: CASE EVENT DATE: 20230101
